FAERS Safety Report 9641454 (Version 1)
Quarter: 2013Q4

REPORT INFORMATION
  Report Type: Report from Study
  Country: US (occurrence: US)
  Receive Date: 20131023
  Receipt Date: 20131023
  Transmission Date: 20140711
  Serious: No
  Sender: FDA-Public Use
  Company Number: US-ABBVIE-13P-163-1066894-00

PATIENT
  Age: 55 Year
  Sex: Female
  Weight: 69.92 kg

DRUGS (6)
  1. LUPRON DEPOT 3.75 MG [Suspect]
     Indication: HAEMORRHAGE
     Route: 030
  2. LUPRON DEPOT 3.75 MG [Suspect]
     Indication: UTERINE LEIOMYOMA
  3. LUPRON DEPOT 11.25 MG [Suspect]
     Indication: HAEMORRHAGE
     Route: 030
  4. LUPRON DEPOT 11.25 MG [Suspect]
     Indication: UTERINE LEIOMYOMA
  5. LEVOTHYROXINE [Concomitant]
     Indication: HYPOTHYROIDISM
     Route: 048
  6. VITAMINS (OTC) [Concomitant]
     Indication: VITAMIN SUPPLEMENTATION

REACTIONS (6)
  - Off label use [Unknown]
  - Haemorrhage [Not Recovered/Not Resolved]
  - Injection site pain [Recovering/Resolving]
  - Incorrect product storage [Unknown]
  - Drug ineffective [Unknown]
  - Product quality issue [Unknown]
